FAERS Safety Report 11650292 (Version 3)
Quarter: 2016Q1

REPORT INFORMATION
  Report Type: Spontaneous
  Country: US (occurrence: US)
  Receive Date: 20151021
  Receipt Date: 20160331
  Transmission Date: 20160525
  Serious: Yes (Other)
  Sender: FDA-Public Use
  Company Number: US-TAKEDA-2015MPI006791

PATIENT
  Age: 70 Year
  Sex: Female

DRUGS (4)
  1. VELCADE [Suspect]
     Active Substance: BORTEZOMIB
     Indication: PLASMA CELL LEUKAEMIA
     Dosage: UNK
     Route: 042
  2. REVLIMID [Suspect]
     Active Substance: LENALIDOMIDE
     Dosage: 25 MG, UNK
     Route: 048
     Dates: start: 201507
  3. LOVENOX [Concomitant]
     Active Substance: ENOXAPARIN SODIUM
     Dosage: UNK
     Route: 065
  4. REVLIMID [Suspect]
     Active Substance: LENALIDOMIDE
     Indication: PLASMA CELL LEUKAEMIA
     Dosage: 25 MG
     Route: 048
     Dates: start: 20150610, end: 20150703

REACTIONS (3)
  - Liver function test increased [Recovered/Resolved]
  - Diarrhoea [Recovered/Resolved with Sequelae]
  - Muscle spasms [Recovering/Resolving]

NARRATIVE: CASE EVENT DATE: 2015
